FAERS Safety Report 8320567-0 (Version None)
Quarter: 2012Q2

REPORT INFORMATION
  Report Type: 
  Country: None (occurrence: None)
  Receive Date: 20120430
  Receipt Date: 20120427
  Transmission Date: 20120825
  Serious: Yes (Hospitalization, Other)
  Sender: FDA-Public Use
  Company Number: JP-PFIZER INC-2012090646

PATIENT
  Age: 64 Year
  Sex: Female

DRUGS (3)
  1. ZOLOFT [Suspect]
     Indication: DEPRESSION
     Dosage: 25 MG, 1X/DAY
     Route: 048
     Dates: start: 20120113, end: 20120119
  2. ZOLOFT [Suspect]
     Dosage: 50 MG, 1X/DAY
     Route: 048
     Dates: start: 20120120, end: 20120121
  3. LENDORMIN D [Concomitant]
     Indication: INSOMNIA
     Dosage: 0.25 MG, 1X/DAY
     Route: 048
     Dates: start: 20120113, end: 20120126

REACTIONS (4)
  - HYPONATRAEMIA [None]
  - LOSS OF CONSCIOUSNESS [None]
  - WATER INTOXICATION [None]
  - INAPPROPRIATE ANTIDIURETIC HORMONE SECRETION [None]
